FAERS Safety Report 15702584 (Version 1)
Quarter: 2018Q4

REPORT INFORMATION
  Report Type: Spontaneous
  Country: US (occurrence: US)
  Receive Date: 20181210
  Receipt Date: 20181210
  Transmission Date: 20190205
  Serious: No
  Sender: FDA-Public Use
  Company Number: US-KYOWAKIRIN-2018BKK001227

PATIENT

DRUGS (1)
  1. SANCUSO [Suspect]
     Active Substance: GRANISETRON
     Indication: IMPAIRED GASTRIC EMPTYING
     Dosage: 1 DF, PRESCRIBED ONCE EVERY 7 DAYS BUT THE PATIENT CUT THE PATCH IN HALF
     Route: 062
     Dates: start: 20180504

REACTIONS (9)
  - Dyskinesia [Unknown]
  - Product use in unapproved indication [Not Recovered/Not Resolved]
  - Insomnia [Unknown]
  - Migraine [Recovered/Resolved]
  - Wrong technique in product usage process [Not Recovered/Not Resolved]
  - Muscle spasticity [Unknown]
  - Nervousness [Unknown]
  - Psychomotor hyperactivity [Unknown]
  - Diarrhoea [Unknown]

NARRATIVE: CASE EVENT DATE: 201805
